FAERS Safety Report 24718820 (Version 1)
Quarter: 2024Q4

REPORT INFORMATION
  Report Type: Spontaneous
  Country: US (occurrence: US)
  Receive Date: 20241210
  Receipt Date: 20241210
  Transmission Date: 20250114
  Serious: No
  Sender: PERRIGO
  Company Number: US-PERRIGO-24US000456

PATIENT
  Age: 71 Year
  Sex: Female

DRUGS (2)
  1. MIGRAINE FORMULA [Suspect]
     Active Substance: ACETAMINOPHEN\ASPIRIN\CAFFEINE
     Indication: Migraine
     Dosage: ONE TABLET, PRN
     Route: 048
     Dates: start: 202312
  2. JAKAFI [Concomitant]
     Active Substance: RUXOLITINIB
     Indication: Prophylaxis
     Dosage: UNK
     Route: 065
     Dates: start: 2022

REACTIONS (1)
  - Underdose [Unknown]

NARRATIVE: CASE EVENT DATE: 20231201
